FAERS Safety Report 7931805-8 (Version None)
Quarter: 2011Q4

REPORT INFORMATION
  Report Type: 
  Country: None (occurrence: None)
  Receive Date: 20111121
  Receipt Date: 20111114
  Transmission Date: 20120403
  Serious: Yes (Other)
  Sender: FDA-Public Use
  Company Number: CA-JNJFOC-20111106227

PATIENT
  Sex: Female
  Weight: 70 kg

DRUGS (4)
  1. ZOLOFT [Concomitant]
  2. REMICADE [Suspect]
     Indication: CROHN'S DISEASE
     Dosage: INDUCTION PHASE
     Route: 042
     Dates: start: 20111001
  3. IMURAN [Concomitant]
  4. PREDNISONE TAB [Concomitant]

REACTIONS (2)
  - MYALGIA [None]
  - CHILLS [None]
